FAERS Safety Report 5914401-3 (Version None)
Quarter: 2008Q4

REPORT INFORMATION
  Report Type: 
  Country: None (occurrence: None)
  Receive Date: 20081009
  Receipt Date: 20081001
  Transmission Date: 20090506
  Serious: Yes (Other)
  Sender: FDA-Public Use
  Company Number: FR-AMGEN-US308733

PATIENT
  Sex: Female

DRUGS (6)
  1. ENBREL [Suspect]
     Indication: PSORIASIS
     Route: 058
     Dates: start: 20071015
  2. ENBREL [Suspect]
     Indication: ARTHROPATHY
  3. TAREG [Concomitant]
     Dosage: UNKNOWN
     Route: 065
  4. METHOTREXATE SODIUM [Concomitant]
     Dosage: UNKNOWN
     Route: 065
     Dates: start: 20080317
  5. DIHYDROERGOTAMINE MESYLATE [Concomitant]
     Route: 065
  6. TROXERUTIN [Concomitant]
     Route: 065

REACTIONS (5)
  - ARTHRALGIA [None]
  - ENDOMETRIAL HYPERPLASIA [None]
  - MENORRHAGIA [None]
  - METRORRHAGIA [None]
  - PSORIASIS [None]
